FAERS Safety Report 15642930 (Version 1)
Quarter: 2018Q4

REPORT INFORMATION
  Report Type: Report from Study
  Country: US (occurrence: US)
  Receive Date: 20181121
  Receipt Date: 20181121
  Transmission Date: 20190205
  Serious: Yes (Hospitalization)
  Sender: FDA-Public Use
  Company Number: US-EISAI MEDICAL RESEARCH-EC-2018-045594

PATIENT
  Sex: Female
  Weight: 59.4 kg

DRUGS (9)
  1. COLLAGEN CAPSULE WITH VITAMIN C [Concomitant]
  2. TIVICAY [Concomitant]
     Active Substance: DOLUTEGRAVIR SODIUM
  3. DESCOVY [Concomitant]
     Active Substance: EMTRICITABINE\TENOFOVIR ALAFENAMIDE FUMARATE
  4. AMLODIPINE BESYLATE. [Concomitant]
     Active Substance: AMLODIPINE BESYLATE
  5. CLONIDINE. [Concomitant]
     Active Substance: CLONIDINE
  6. LENVIMA [Suspect]
     Active Substance: LENVATINIB
     Route: 048
     Dates: start: 2018
  7. LENVIMA [Suspect]
     Active Substance: LENVATINIB
     Indication: THYROID CANCER
     Route: 048
     Dates: start: 20180914, end: 2018
  8. LOSARTAN POTASSIUM. [Concomitant]
     Active Substance: LOSARTAN POTASSIUM
  9. ATENOLOL. [Concomitant]
     Active Substance: ATENOLOL

REACTIONS (27)
  - Headache [Unknown]
  - Tongue blistering [Unknown]
  - Fatigue [Unknown]
  - Dysgeusia [Not Recovered/Not Resolved]
  - Pain [Unknown]
  - Feeling cold [Unknown]
  - Peripheral swelling [Unknown]
  - Constipation [Unknown]
  - Diarrhoea [Unknown]
  - Thyroid function test abnormal [Unknown]
  - Renal disorder [Unknown]
  - Haemoptysis [Unknown]
  - Epistaxis [Unknown]
  - Rash [Unknown]
  - Anxiety [Unknown]
  - Neck pain [Unknown]
  - Decreased appetite [Unknown]
  - Ageusia [Unknown]
  - Musculoskeletal pain [Unknown]
  - Oral mucosal blistering [Not Recovered/Not Resolved]
  - Pain in extremity [Unknown]
  - Abdominal pain upper [Unknown]
  - Swelling [Unknown]
  - Somnolence [Unknown]
  - Hypertension [Unknown]
  - Nausea [Unknown]
  - Insomnia [Unknown]

NARRATIVE: CASE EVENT DATE: 2018
